APPROVED DRUG PRODUCT: ISRADIPINE
Active Ingredient: ISRADIPINE
Strength: 5MG
Dosage Form/Route: CAPSULE;ORAL
Application: A077317 | Product #002 | TE Code: AB
Applicant: WATSON LABORATORIES INC AN INDIRECT WHOLLY OWNED SUB OF TEVA PHARMACEUTICALS USA INC
Approved: Jan 5, 2006 | RLD: No | RS: Yes | Type: RX